FAERS Safety Report 7169966-3 (Version None)
Quarter: 2010Q4

REPORT INFORMATION
  Report Type: 
  Country: None (occurrence: None)
  Receive Date: 20101206
  Receipt Date: 20101119
  Transmission Date: 20110411
  Serious: Yes (Life-Threatening, Hospitalization)
  Sender: FDA-Public Use
  Company Number: 8048049

PATIENT
  Sex: Male
  Weight: 74 kg

DRUGS (7)
  1. KEPPRA [Suspect]
     Indication: CONVULSION
     Dosage: 3000 MG, UP TO MAX 3000 MG IN 2 OR 3 DOSES INTRAVENOUS
     Route: 042
     Dates: start: 20090616, end: 20090702
  2. VIMPAT [Suspect]
     Indication: CONVULSION
     Dosage: 50 MG BID INTRAVENOUS
     Route: 042
     Dates: start: 20090620, end: 20090622
  3. VALPROATE SODIUM [Suspect]
     Indication: CONVULSION
     Dosage: 600 MG QID INTRAVENOUS
     Route: 042
     Dates: start: 20090613, end: 20090618
  4. PANTOPRAZOLE [Concomitant]
  5. HEPARIN [Concomitant]
  6. AMPICILLIN W/SULBACTAM [Concomitant]
  7. TOPAMAX [Concomitant]

REACTIONS (3)
  - BRADYCARDIA [None]
  - HALLUCINATIONS, MIXED [None]
  - PSYCHOTIC DISORDER [None]
